FAERS Safety Report 7031605-X (Version None)
Quarter: 2010Q4

REPORT INFORMATION
  Report Type: 
  Country: None (occurrence: None)
  Receive Date: 20101006
  Receipt Date: 20101006
  Transmission Date: 20110411
  Serious: No
  Sender: FDA-Public Use
  Company Number: None

PATIENT
  Age: 42 Year
  Sex: Male
  Weight: 136.0791 kg

DRUGS (2)
  1. OXYCONTIN [Suspect]
     Indication: HEAD INJURY
     Dosage: 5 TABLETS DAILY PO
     Route: 048
  2. OXYCONTIN [Suspect]
     Indication: HEADACHE
     Dosage: 5 TABLETS DAILY PO
     Route: 048

REACTIONS (2)
  - DRUG EFFECT DECREASED [None]
  - PRODUCT FORMULATION ISSUE [None]
